FAERS Safety Report 9233538 (Version 1)
Quarter: 2013Q2

REPORT INFORMATION
  Report Type: Report from Study
  Country: None (occurrence: JP)
  Receive Date: 20130416
  Receipt Date: 20130416
  Transmission Date: 20140414
  Serious: Yes (Life-Threatening)
  Sender: FDA-Public Use
  Company Number: CELGENEUS-087-21880-11040857

PATIENT
  Age: 75 Year
  Sex: Female

DRUGS (32)
  1. REVLIMID [Suspect]
     Indication: PLASMA CELL MYELOMA
     Dosage: 10 MILLIGRAM
     Route: 048
     Dates: start: 20110108, end: 20110121
  2. REVLIMID [Suspect]
     Dosage: 5 MILLIGRAM
     Route: 048
     Dates: start: 20110218, end: 20110310
  3. REVLIMID [Suspect]
     Dosage: 5 MILLIGRAM
     Route: 048
     Dates: start: 20110319, end: 20110408
  4. REVLIMID [Suspect]
     Dosage: 5 MILLIGRAM
     Route: 048
     Dates: start: 20110416, end: 20110505
  5. REVLIMID [Suspect]
     Dosage: 5 MILLIGRAM
     Route: 048
     Dates: start: 20110514, end: 20110603
  6. REVLIMID [Suspect]
     Dosage: 5 MILLIGRAM
     Route: 048
     Dates: start: 20110611, end: 20110624
  7. REVLIMID [Suspect]
     Dosage: 5 MILLIGRAM
     Route: 048
     Dates: start: 20111022, end: 20111111
  8. REVLIMID [Suspect]
     Dosage: 5 MILLIGRAM
     Route: 048
     Dates: start: 20120407, end: 20120420
  9. REVLIMID [Suspect]
     Dosage: 5 MILLIGRAM
     Route: 048
     Dates: start: 20120511, end: 20120524
  10. REVLIMID [Suspect]
     Dosage: 5 MILLIGRAM
     Route: 048
     Dates: start: 20120609, end: 20120629
  11. LENADEX [Suspect]
     Indication: PLASMA CELL MYELOMA
     Dosage: 4 MILLIGRAM
     Route: 048
     Dates: start: 20110108, end: 20110111
  12. LENADEX [Suspect]
     Dosage: 4 MILLIGRAM
     Route: 048
     Dates: start: 20110218, end: 20110221
  13. LENADEX [Suspect]
     Dosage: 4 MILLIGRAM
     Route: 048
     Dates: start: 20110416, end: 20110419
  14. LENADEX [Suspect]
     Dosage: 4 MILLIGRAM
     Route: 048
     Dates: start: 20110514, end: 20110517
  15. LENADEX [Suspect]
     Dosage: 4 MILLIGRAM
     Route: 048
     Dates: start: 20110611, end: 20110614
  16. LENADEX [Suspect]
     Dosage: 4 MILLIGRAM
     Route: 048
     Dates: start: 20111022, end: 20111025
  17. LENADEX [Suspect]
     Dosage: 4 MILLIGRAM
     Route: 048
     Dates: start: 20120407, end: 20120410
  18. LENADEX [Suspect]
     Dosage: 4 MILLIGRAM
     Route: 048
     Dates: start: 20120511, end: 20120514
  19. LENADEX [Suspect]
     Dosage: 4 MILLIGRAM
     Route: 048
     Dates: start: 20120609, end: 20120612
  20. BUFFERIN [Concomitant]
     Indication: ANGINA PECTORIS
     Dosage: 81 MILLIGRAM
     Route: 048
     Dates: start: 20080416
  21. BLOPRESS [Concomitant]
     Indication: HYPERTENSION
     Dosage: 4 MILLIGRAM
     Route: 048
     Dates: start: 20070220
  22. MUCOSTA [Concomitant]
     Indication: PRODUCT USED FOR UNKNOWN INDICATION
     Dosage: 300 MILLIGRAM
     Route: 048
     Dates: start: 20070220
  23. GABAPEN [Concomitant]
     Indication: NEUROPATHY PERIPHERAL
     Dosage: 600 MILLIGRAM
     Route: 048
     Dates: start: 20100910
  24. HALCION [Concomitant]
     Indication: PRODUCT USED FOR UNKNOWN INDICATION
     Dosage: .25 MILLIGRAM
     Route: 048
     Dates: start: 20070220
  25. SENNOSIDE [Concomitant]
     Indication: PRODUCT USED FOR UNKNOWN INDICATION
     Dosage: 12 MILLIGRAM
     Route: 048
     Dates: start: 20100610
  26. GAMOFA D [Concomitant]
     Indication: PRODUCT USED FOR UNKNOWN INDICATION
     Dosage: 40 MILLIGRAM
     Route: 048
     Dates: start: 20070220
  27. MAGMITT [Concomitant]
     Indication: PRODUCT USED FOR UNKNOWN INDICATION
     Dosage: 990 MILLIGRAM
     Route: 048
     Dates: start: 20100410
  28. YOKU-KAN-SAN [Concomitant]
     Indication: NEUROPATHY PERIPHERAL
     Dosage: 7.5 MILLIGRAM
     Route: 048
     Dates: start: 20100910
  29. HYPEN [Concomitant]
     Indication: NEUROPATHY PERIPHERAL
     Dosage: 400 MILLIGRAM
     Route: 048
     Dates: start: 20101119
  30. LYRICA [Concomitant]
     Indication: NEUROPATHY PERIPHERAL
     Dosage: 50 MILLIGRAM
     Route: 048
     Dates: start: 20110611, end: 20110623
  31. LYRICA [Concomitant]
     Dosage: 100 MILLIGRAM
     Route: 048
     Dates: start: 20110624, end: 20110708
  32. LYRICA [Concomitant]
     Dosage: 150 MILLIGRAM
     Route: 048
     Dates: start: 20110709

REACTIONS (12)
  - Pancreatic carcinoma [Not Recovered/Not Resolved]
  - C-reactive protein increased [Recovered/Resolved]
  - Renal impairment [Recovered/Resolved]
  - White blood cell count increased [Recovered/Resolved]
  - Pruritus [Recovered/Resolved]
  - C-reactive protein increased [Recovered/Resolved]
  - Pharyngitis [Recovered/Resolved]
  - C-reactive protein increased [Recovered/Resolved]
  - Pharyngitis [Recovered/Resolved]
  - Muscular weakness [Recovered/Resolved]
  - Alopecia [Recovering/Resolving]
  - Blood creatinine increased [Recovered/Resolved]
